FAERS Safety Report 9212579 (Version 3)
Quarter: 2013Q2

REPORT INFORMATION
  Report Type: Report from Study
  Country: PL (occurrence: PL)
  Receive Date: 20130405
  Receipt Date: 20130425
  Transmission Date: 20140414
  Serious: Yes (Hospitalization)
  Sender: FDA-Public Use
  Company Number: PL-BIOGENIDEC-2013BI021288

PATIENT
  Age: 47 Year
  Sex: Female
  Weight: 71 kg

DRUGS (5)
  1. BG00012 [Suspect]
     Indication: MULTIPLE SCLEROSIS
     Dates: start: 20110207
  2. NOVOFEM [Concomitant]
     Indication: CONTRACEPTION
     Route: 048
     Dates: start: 2008
  3. MIRTAZAPIN [Concomitant]
     Indication: DEPRESSION
     Route: 048
     Dates: start: 20091001
  4. VESICARE [Concomitant]
     Indication: MULTIPLE SCLEROSIS
     Route: 048
     Dates: start: 2006
  5. CONTROLOC [Concomitant]
     Indication: PROPHYLAXIS
     Route: 048
     Dates: start: 20090802

REACTIONS (1)
  - Intervertebral disc disorder [Recovered/Resolved]
